FAERS Safety Report 8419686-X (Version None)
Quarter: 2012Q2

REPORT INFORMATION
  Report Type: 
  Country: None (occurrence: None)
  Receive Date: 20120604
  Receipt Date: 20120604
  Transmission Date: 20120825
  Serious: No
  Sender: FDA-Public Use
  Company Number: None

PATIENT
  Sex: Male
  Weight: 62.7778 kg

DRUGS (1)
  1. CELEXA [Suspect]
     Indication: MAJOR DEPRESSION
     Dosage: 40MG DAILY PO
     Route: 048
     Dates: start: 19990819, end: 20120530

REACTIONS (12)
  - DYSLIPIDAEMIA [None]
  - HYPOTHYROIDISM [None]
  - BLOOD MAGNESIUM DECREASED [None]
  - BLOOD POTASSIUM DECREASED [None]
  - HYPERTENSION [None]
  - CARDIAC FAILURE CONGESTIVE [None]
  - BRADYARRHYTHMIA [None]
  - OSTEOARTHRITIS [None]
  - COELIAC DISEASE [None]
  - CEREBROVASCULAR ACCIDENT [None]
  - SYNCOPE [None]
  - ELECTROCARDIOGRAM QT PROLONGED [None]
